FAERS Safety Report 25336886 (Version 1)
Quarter: 2025Q2

REPORT INFORMATION
  Report Type: Spontaneous
  Country: JP (occurrence: JP)
  Receive Date: 20250520
  Receipt Date: 20250520
  Transmission Date: 20250717
  Serious: Yes (Death)
  Sender: SHIONOGI
  Company Number: JP-shionogi-202500004986

PATIENT

DRUGS (1)
  1. CEFIDEROCOL [Suspect]
     Active Substance: CEFIDEROCOL
     Indication: Peritonitis
     Route: 065
     Dates: start: 20250428

REACTIONS (1)
  - Death [Fatal]
